FAERS Safety Report 10027167 (Version 1)
Quarter: 2014Q1

REPORT INFORMATION
  Report Type: Spontaneous
  Country: US (occurrence: US)
  Receive Date: 20140321
  Receipt Date: 20140321
  Transmission Date: 20141002
  Serious: No
  Sender: FDA-Public Use
  Company Number: US-MYLANLABS-2013S1025811

PATIENT
  Age: 49 Year
  Sex: Female

DRUGS (4)
  1. ESTRADIOL TRANSDERMAL SYSTEM, USP [Suspect]
     Indication: MENOPAUSE
     Dosage: CHANGE PATCH WEEKLY.
     Route: 062
     Dates: start: 201306
  2. PROGESTERONE [Concomitant]
  3. VITAMIN B12 [Concomitant]
  4. DIURETIC [Concomitant]
     Indication: FLUID RETENTION
     Dosage: TAKING FOR WATER RETENTION AND SWELLING.

REACTIONS (3)
  - Drug effect decreased [Not Recovered/Not Resolved]
  - Menopause [Not Recovered/Not Resolved]
  - Wrong technique in drug usage process [Not Recovered/Not Resolved]
